FAERS Safety Report 4855321-5 (Version None)
Quarter: 2005Q4

REPORT INFORMATION
  Report Type: 
  Country: None (occurrence: None)
  Receive Date: 20051214
  Receipt Date: 20051128
  Transmission Date: 20060501
  Serious: Yes (Other)
  Sender: FDA-Public Use
  Company Number: US200511003297

PATIENT
  Age: 86 Year
  Sex: Female

DRUGS (2)
  1. FORTEO [Suspect]
     Indication: OSTEOPOROSIS
     Dates: start: 20040501
  2. FORTEO PEN (FORTEO PENS) [Concomitant]

REACTIONS (4)
  - CEREBROVASCULAR ACCIDENT [None]
  - DEAFNESS UNILATERAL [None]
  - MEMORY IMPAIRMENT [None]
  - PHARMACEUTICAL PRODUCT COMPLAINT [None]
